FAERS Safety Report 5288645-0 (Version None)
Quarter: 2007Q2

REPORT INFORMATION
  Report Type: 
  Country: None (occurrence: None)
  Receive Date: 20070405
  Receipt Date: 20060425
  Transmission Date: 20071010
  Serious: No
  Sender: FDA-Public Use
  Company Number: 2006UW08480

PATIENT
  Sex: Female

DRUGS (1)
  1. SEROQUEL [Suspect]
     Indication: HEADACHE
     Route: 048
     Dates: start: 20040617, end: 20051027

REACTIONS (1)
  - DIABETES MELLITUS [None]
